FAERS Safety Report 20857953 (Version 1)
Quarter: 2022Q2

REPORT INFORMATION
  Report Type: Report from Study
  Country: US (occurrence: US)
  Receive Date: 20220521
  Receipt Date: 20220521
  Transmission Date: 20220721
  Serious: Yes (Other)
  Sender: FDA-Public Use
  Company Number: US-BRISTOL-MYERS SQUIBB COMPANY-2022-037211

PATIENT
  Age: 58 Year
  Sex: Male
  Weight: 80.285 kg

DRUGS (1)
  1. REVLIMID [Suspect]
     Active Substance: LENALIDOMIDE
     Indication: Plasma cell myeloma in remission
     Dosage: EVERY OTHER DAY FOR 21 DAYS THEN 7 DAYS OFF FOR A 28 DAYS CYCLE
     Route: 048
     Dates: start: 201901

REACTIONS (2)
  - Respiratory tract congestion [Unknown]
  - Off label use [Unknown]
